FAERS Safety Report 6144817-4 (Version None)
Quarter: 2009Q2

REPORT INFORMATION
  Report Type: 
  Country: None (occurrence: None)
  Receive Date: 20090406
  Receipt Date: 20090323
  Transmission Date: 20091009
  Serious: Yes (Hospitalization, Other)
  Sender: FDA-Public Use
  Company Number: US-ELI_LILLY_AND_COMPANY-US200903006528

PATIENT
  Age: 17 Year
  Sex: Male

DRUGS (4)
  1. STRATTERA [Suspect]
     Dosage: 10 MG, UNKNOWN
     Route: 065
     Dates: start: 20081218
  2. STRATTERA [Suspect]
     Dosage: 18 MG, UNKNOWN
     Route: 065
  3. STRATTERA [Suspect]
     Dosage: 25 MG, UNKNOWN
     Route: 065
  4. STRATTERA [Suspect]
     Dosage: 40 MG, UNKNOWN
     Route: 065

REACTIONS (4)
  - HOSPITALISATION [None]
  - INTENTIONAL OVERDOSE [None]
  - SUICIDE ATTEMPT [None]
  - TACHYCARDIA [None]
